FAERS Safety Report 10191376 (Version 1)
Quarter: 2014Q2

REPORT INFORMATION
  Report Type: Spontaneous
  Country: GB (occurrence: GB)
  Receive Date: 20140523
  Receipt Date: 20140523
  Transmission Date: 20141212
  Serious: Yes (Other)
  Sender: FDA-Public Use
  Company Number: GB-MYLANLABS-2014S1011204

PATIENT
  Age: 40 Year
  Sex: Male

DRUGS (2)
  1. DICLOFENAC [Suspect]
     Indication: PSORIATIC ARTHROPATHY
     Route: 065
  2. DICLOFENAC [Suspect]
     Indication: OFF LABEL USE
     Route: 065

REACTIONS (1)
  - Pseudoporphyria [Recovering/Resolving]
